FAERS Safety Report 5530681-0 (Version None)
Quarter: 2007Q4

REPORT INFORMATION
  Report Type: 
  Country: None (occurrence: None)
  Receive Date: 20071128
  Receipt Date: 20071128
  Transmission Date: 20080405
  Serious: No
  Sender: FDA-Public Use
  Company Number: None

PATIENT
  Age: 93 Year
  Sex: Male
  Weight: 81 kg

DRUGS (14)
  1. INSULIN ASPART [Suspect]
     Indication: TYPE 2 DIABETES MELLITUS
     Dosage: SSI, IOU/SQ TID
     Route: 058
     Dates: start: 20071023, end: 20071024
  2. INSULIN GLARGINE [Suspect]
     Dosage: 38 UNITS SQ BID
     Route: 058
     Dates: start: 20071023, end: 20071024
  3. AMIODARONE HCL [Concomitant]
  4. ATORVASTATIN [Concomitant]
  5. LEVOTHYROXINE SODIUM [Concomitant]
  6. ASPIRIN [Concomitant]
  7. DOCUSATE [Concomitant]
  8. SENNA [Concomitant]
  9. FUROSEMIDE [Concomitant]
  10. LANSOPRAZOLE [Concomitant]
  11. SERTRALINE [Concomitant]
  12. METOPROLOL [Concomitant]
  13. WARFARIN SODIUM [Concomitant]
  14. ALBUTEROL [Concomitant]

REACTIONS (4)
  - BLOOD GLUCOSE DECREASED [None]
  - BLOOD GLUCOSE INCREASED [None]
  - HYPERHIDROSIS [None]
  - LETHARGY [None]
